FAERS Safety Report 8349074-6 (Version None)
Quarter: 2012Q2

REPORT INFORMATION
  Report Type: 
  Country: None (occurrence: None)
  Receive Date: 20120510
  Receipt Date: 20120430
  Transmission Date: 20120825
  Serious: Yes (Hospitalization)
  Sender: FDA-Public Use
  Company Number: FR-JNJFOC-20120506513

PATIENT
  Age: 64 Year
  Sex: Female

DRUGS (3)
  1. DEPAKOTE [Concomitant]
     Route: 065
  2. RISPERDAL [Suspect]
     Indication: PRODUCT USED FOR UNKNOWN INDICATION
     Dosage: INTRODUCED 15DAYS BEFORE REPORT
     Route: 048
  3. VALIUM [Concomitant]
     Route: 065

REACTIONS (1)
  - THROMBOPHLEBITIS [None]
